FAERS Safety Report 9099081 (Version 1)
Quarter: 2013Q1

REPORT INFORMATION
  Report Type: Spontaneous
  Country: US (occurrence: US)
  Receive Date: 20130213
  Receipt Date: 20130213
  Transmission Date: 20140127
  Serious: Yes (Other)
  Sender: FDA-Public Use
  Company Number: US-PFIZER INC-2013053635

PATIENT
  Age: 65 Year
  Sex: 0

DRUGS (7)
  1. DILANTIN [Suspect]
     Dosage: 100 MG, UNK (ALTERNATE 2 AND 3 EVERY OTHER DAY, 3 PRN)
  2. CELEBREX [Suspect]
     Dosage: 200 MG, 1X/DAY
  3. PHENOBARBITAL [Concomitant]
     Dosage: 32.4 MG, 2X/DAY
  4. CARVEDILOL [Concomitant]
     Dosage: 6.5 MG, 2X/DAY
  5. ATACAND [Concomitant]
     Dosage: 32/25, 1X/DAY
  6. WARFARIN [Concomitant]
     Dosage: 6 MG, 1X/DAY
  7. TYLENOL EXTRA-STRENGTH [Concomitant]
     Dosage: 1000 MG, AS NEEDED (500MG X 2)
     Route: 048

REACTIONS (1)
  - Convulsion [Unknown]
